FAERS Safety Report 21471915 (Version 5)
Quarter: 2023Q1

REPORT INFORMATION
  Report Type: Spontaneous
  Country: US (occurrence: US)
  Receive Date: 20221018
  Receipt Date: 20230127
  Transmission Date: 20230418
  Serious: Yes (Other)
  Sender: FDA-Public Use
  Company Number: US-PFIZER INC-PV202200083824

PATIENT
  Age: 39 Year
  Sex: Female

DRUGS (1)
  1. XELJANZ XR [Suspect]
     Active Substance: TOFACITINIB CITRATE
     Indication: Rheumatoid arthritis
     Dosage: 11 MG, DAILY
     Route: 048
     Dates: start: 202209, end: 202212

REACTIONS (11)
  - Weight decreased [Unknown]
  - Dehydration [Unknown]
  - Cough [Unknown]
  - Multiple allergies [Unknown]
  - Therapeutic response unexpected [Unknown]
  - Increased appetite [Unknown]
  - Skin laxity [Unknown]
  - Discouragement [Unknown]
  - Depression [Unknown]
  - Drug ineffective [Unknown]
  - Product distribution issue [Unknown]

NARRATIVE: CASE EVENT DATE: 20220101
